FAERS Safety Report 8879121 (Version 2)
Quarter: 2013Q2

REPORT INFORMATION
  Report Type: Spontaneous
  Country: IT (occurrence: None)
  Receive Date: 20121025
  Receipt Date: 20130516
  Transmission Date: 20140414
  Serious: Yes (Other)
  Sender: FDA-Public Use
  Company Number: 1454665

PATIENT
  Age: 58 Year
  Sex: Female

DRUGS (4)
  1. SOLDESAM [Concomitant]
  2. PLASIL /00041901/ [Concomitant]
  3. TRIMETON /00072502/ [Concomitant]
  4. OXALIPLATIN [Suspect]
     Indication: COLON CANCER
     Dosage: TOTAL
     Route: 041
     Dates: start: 20120625, end: 20121008

REACTIONS (3)
  - Throat tightness [None]
  - Dyspnoea [None]
  - Dysphonia [None]
